FAERS Safety Report 10409072 (Version 2)
Quarter: 2014Q3

REPORT INFORMATION
  Report Type: Spontaneous
  Country: GB (occurrence: None)
  Receive Date: 20140822
  Receipt Date: 20140827
  Transmission Date: 20150326
  Serious: Yes (Other)
  Sender: FDA-Public Use
  Company Number: AUR-APL-2014-08825

PATIENT
  Age: 70 Year
  Sex: Male
  Weight: 84 kg

DRUGS (12)
  1. ZINC (ZINC) [Concomitant]
  2. COENZYME Q10 (UBIDECARENONE) [Concomitant]
  3. RAMIPRIL (RAMIPRIL) [Concomitant]
     Active Substance: RAMIPRIL
  4. SALBUTAMOL (SALBUTAMOL) [Concomitant]
     Active Substance: ALBUTEROL
  5. ATORVASTATIN [Suspect]
     Active Substance: ATORVASTATIN
     Indication: BLOOD CHOLESTEROL INCREASED
  6. LANTUS [Concomitant]
     Active Substance: INSULIN GLARGINE
  7. SIMVASTATIN (SIMVASTATIN) UNKNOWN, UNKNOWN [Suspect]
     Active Substance: SIMVASTATIN
     Indication: BLOOD CHOLESTEROL INCREASED
  8. CLENIL (MODULITE (BECLOMETASONE DIPROPIONATE) [Concomitant]
  9. LANSOPRAZOLE (LANSOPRAZOLE) [Concomitant]
     Active Substance: LANSOPRAZOLE
  10. BIMATOPROST (BIMATOPROST) [Concomitant]
  11. TADALAFIL (TADALAFIL) [Concomitant]
  12. NOVORAPID [Concomitant]
     Active Substance: INSULIN ASPART

REACTIONS (4)
  - Eructation [None]
  - Headache [None]
  - Nausea [None]
  - Myalgia [None]

NARRATIVE: CASE EVENT DATE: 20120707
